FAERS Safety Report 4941477-2 (Version None)
Quarter: 2006Q1

REPORT INFORMATION
  Report Type: 
  Country: None (occurrence: None)
  Receive Date: 20060313
  Receipt Date: 20060228
  Transmission Date: 20060701
  Serious: Yes (Hospitalization)
  Sender: FDA-Public Use
  Company Number: US-MERCK-0603USA00084

PATIENT
  Age: 47 Year
  Sex: Female
  Weight: 66 kg

DRUGS (4)
  1. VIOXX [Suspect]
     Indication: BACK PAIN
     Route: 048
     Dates: start: 20011214, end: 20040301
  2. VIOXX [Suspect]
     Route: 048
     Dates: start: 20011214, end: 20040301
  3. VIOXX [Suspect]
     Indication: ARTHRALGIA
     Route: 048
     Dates: start: 20011214, end: 20040301
  4. VIOXX [Suspect]
     Route: 048
     Dates: start: 20011214, end: 20040301

REACTIONS (6)
  - ANGIOPATHY [None]
  - CARDIAC DISORDER [None]
  - CARDIAC VALVE DISEASE [None]
  - EYE DISORDER [None]
  - GASTROINTESTINAL HAEMORRHAGE [None]
  - MYOCARDIAL INFARCTION [None]
